FAERS Safety Report 5609040-8 (Version None)
Quarter: 2008Q1

REPORT INFORMATION
  Report Type: 
  Country: None (occurrence: None)
  Receive Date: 20080131
  Receipt Date: 20080125
  Transmission Date: 20080703
  Serious: Yes (Hospitalization)
  Sender: FDA-Public Use
  Company Number: SE-WYE-G00958508

PATIENT
  Age: 61 Year

DRUGS (2)
  1. TEMSIROLIMUS [Suspect]
     Route: 042
     Dates: start: 20071207, end: 20071225
  2. METHOTREXATE [Suspect]
     Indication: PSORIASIS

REACTIONS (6)
  - CANDIDIASIS [None]
  - CLOSTRIDIAL INFECTION [None]
  - FATIGUE [None]
  - PYOTHORAX [None]
  - PYREXIA [None]
  - SPUTUM PURULENT [None]
